FAERS Safety Report 9007332 (Version 1)
Quarter: 2013Q1

REPORT INFORMATION
  Report Type: Spontaneous
  Country: IT (occurrence: IT)
  Receive Date: 20130110
  Receipt Date: 20130110
  Transmission Date: 20140127
  Serious: Yes (Other)
  Sender: FDA-Public Use
  Company Number: IT-PFIZER INC-2013011104

PATIENT
  Age: 85 Year
  Sex: Male
  Weight: 68 kg

DRUGS (6)
  1. TOTALIP [Suspect]
     Indication: TYPE 2 DIABETES MELLITUS
     Dosage: 1 DF, 1X/DAY
     Route: 048
     Dates: start: 20080101, end: 20120901
  2. DAONIL [Suspect]
     Indication: TYPE 2 DIABETES MELLITUS
     Dosage: 1 DF, 1X/DAY
     Route: 048
     Dates: start: 20080101, end: 20121021
  3. BISOPROLOL FUMARATE [Concomitant]
     Indication: HYPERTENSION
     Dosage: UNK
  4. LACIREX [Concomitant]
     Indication: HYPERTENSION
     Dosage: UNK
  5. LASIX [Concomitant]
     Indication: HYPERTENSION
     Dosage: UNK
  6. COUMADIN [Concomitant]
     Indication: ATRIAL FIBRILLATION
     Dosage: UNK

REACTIONS (3)
  - Confusional state [Recovering/Resolving]
  - Hypoglycaemia [Recovering/Resolving]
  - Presyncope [Recovering/Resolving]
